FAERS Safety Report 18805393 (Version 1)
Quarter: 2021Q1

REPORT INFORMATION
  Report Type: Spontaneous
  Country: US (occurrence: US)
  Receive Date: 20210129
  Receipt Date: 20210129
  Transmission Date: 20210419
  Serious: Yes (Hospitalization)
  Sender: FDA-Public Use
  Company Number: US-009507513-2101USA010921

PATIENT
  Sex: Female

DRUGS (1)
  1. CELESTONE SOLUSPAN [Suspect]
     Active Substance: BETAMETHASONE ACETATE\BETAMETHASONE SODIUM PHOSPHATE
     Indication: LUNG DISORDER
     Dosage: UNK
     Dates: start: 200406

REACTIONS (5)
  - Pain [Recovered/Resolved]
  - Product use in unapproved indication [Unknown]
  - Skin mass [Recovered/Resolved]
  - Maternal exposure during pregnancy [Unknown]
  - Skin weeping [Recovered/Resolved]

NARRATIVE: CASE EVENT DATE: 2004
